FAERS Safety Report 10876817 (Version 1)
Quarter: 2015Q1

REPORT INFORMATION
  Report Type: Spontaneous
  Country: GB (occurrence: GB)
  Receive Date: 20150302
  Receipt Date: 20150302
  Transmission Date: 20150721
  Serious: Yes (Hospitalization, Other)
  Sender: FDA-Public Use
  Company Number: GB-ORION CORPORATION ORION PHARMA-ENTC2015-0064

PATIENT
  Age: 72 Year
  Sex: Male

DRUGS (7)
  1. APOMORPHINE [Suspect]
     Active Substance: APOMORPHINE
     Route: 065
  2. ALFUZOSIN [Suspect]
     Active Substance: ALFUZOSIN
     Route: 065
  3. APOMORPHINE [Suspect]
     Active Substance: APOMORPHINE
     Route: 065
     Dates: start: 2012
  4. FINASTERIDE. [Suspect]
     Active Substance: FINASTERIDE
     Route: 065
  5. AMANTADINE [Suspect]
     Active Substance: AMANTADINE
     Dosage: 200/100 MG
     Route: 065
  6. MIRTAZAPINE. [Suspect]
     Active Substance: MIRTAZAPINE
     Route: 065
  7. STALEVO [Suspect]
     Active Substance: CARBIDOPA\ENTACAPONE\LEVODOPA
     Route: 065

REACTIONS (11)
  - Saliva altered [Not Recovered/Not Resolved]
  - Hallucination, visual [Unknown]
  - Depressed mood [Unknown]
  - Illusion [Unknown]
  - Fall [Unknown]
  - Pelvic fracture [Unknown]
  - On and off phenomenon [Unknown]
  - Rash [Unknown]
  - Sensory disturbance [Unknown]
  - Soft tissue haemorrhage [Unknown]
  - Nasal discomfort [Unknown]
